FAERS Safety Report 20597718 (Version 4)
Quarter: 2022Q4

REPORT INFORMATION
  Report Type: Spontaneous
  Country: US (occurrence: None)
  Receive Date: 20220315
  Receipt Date: 20221229
  Transmission Date: 20230113
  Serious: Yes (Other)
  Sender: FDA-Public Use
  Company Number: US-ROCHE-2922886

PATIENT
  Age: 31 Year
  Sex: Female

DRUGS (5)
  1. XOLAIR [Suspect]
     Active Substance: OMALIZUMAB
     Indication: Idiopathic urticaria
     Dosage: STRENGTH: 150MG/ML?3 SYRINGES
     Route: 058
     Dates: start: 202108
  2. XOLAIR [Suspect]
     Active Substance: OMALIZUMAB
  3. EMGALITY [Concomitant]
     Active Substance: GALCANEZUMAB-GNLM
  4. VALIUM [Concomitant]
     Active Substance: DIAZEPAM
  5. TAKHZYRO [Concomitant]
     Active Substance: LANADELUMAB-FLYO

REACTIONS (10)
  - Off label use [Unknown]
  - Swelling face [Recovered/Resolved]
  - Swelling [Unknown]
  - Vertigo [Unknown]
  - Abdominal distension [Recovered/Resolved]
  - Migraine [Unknown]
  - Injection site reaction [Unknown]
  - Abdominal distension [Recovered/Resolved]
  - Pharyngeal swelling [Unknown]
  - Pulmonary embolism [Unknown]

NARRATIVE: CASE EVENT DATE: 20210930
